FAERS Safety Report 18631347 (Version 1)
Quarter: 2020Q4

REPORT INFORMATION
  Report Type: Spontaneous
  Country: US (occurrence: US)
  Receive Date: 20201217
  Receipt Date: 20201217
  Transmission Date: 20210114
  Serious: No
  Sender: FDA-Public Use
  Company Number: US-ENDO PHARMACEUTICALS INC-2020-003338

PATIENT
  Sex: Male

DRUGS (4)
  1. XIAFLEX [Suspect]
     Active Substance: COLLAGENASE CLOSTRIDIUM HISTOLYTICUM
     Indication: PEYRONIE^S DISEASE
     Dosage: 0.58 MG, UNKNOWN (CYCLE 2, INJECTION 2)
     Route: 065
     Dates: start: 20200617
  2. XIAFLEX [Suspect]
     Active Substance: COLLAGENASE CLOSTRIDIUM HISTOLYTICUM
     Dosage: 0.9 MG, UNK (CYCLE 1, INJECTION 2)
     Route: 065
     Dates: start: 2020
  3. XIAFLEX [Suspect]
     Active Substance: COLLAGENASE CLOSTRIDIUM HISTOLYTICUM
     Dosage: 0.58 MG, UNKNOWN (CYCLE 2, INJECTION 1)
     Route: 065
     Dates: start: 2020
  4. XIAFLEX [Suspect]
     Active Substance: COLLAGENASE CLOSTRIDIUM HISTOLYTICUM
     Dosage: 0.9 MG, UNK (CYCLE 1, INJECTION 1)
     Route: 065
     Dates: start: 20200506

REACTIONS (7)
  - Pain [Unknown]
  - Injection site nodule [Unknown]
  - Penile haematoma [Recovered/Resolved]
  - Painful erection [Unknown]
  - Injection site swelling [Recovering/Resolving]
  - Nodule [Unknown]
  - Penile swelling [Recovered/Resolved]
